FAERS Safety Report 11154915 (Version 1)
Quarter: 2015Q2

REPORT INFORMATION
  Report Type: Spontaneous
  Country: PL (occurrence: PL)
  Receive Date: 20150602
  Receipt Date: 20150602
  Transmission Date: 20150821
  Serious: Yes (Other)
  Sender: FDA-Public Use
  Company Number: PL-TEVA-566020ISR

PATIENT
  Age: 57 Year
  Sex: Female
  Weight: 47 kg

DRUGS (5)
  1. FAXIGEN [Concomitant]
     Route: 048
     Dates: start: 201205
  2. AGAPURIN [Concomitant]
     Route: 048
     Dates: start: 20121006
  3. VITAMIN D3 [Concomitant]
     Active Substance: CHOLECALCIFEROL
  4. GABAPENTIN. [Suspect]
     Active Substance: GABAPENTIN
     Indication: RADICULOPATHY
     Route: 048
     Dates: start: 20120622
  5. VERSATIS [Concomitant]
     Active Substance: LIDOCAINE
     Dosage: DOSE: 1 PATCH
     Route: 062

REACTIONS (1)
  - Alopecia [Unknown]

NARRATIVE: CASE EVENT DATE: 20120930
